FAERS Safety Report 14060799 (Version 1)
Quarter: 2017Q4

REPORT INFORMATION
  Report Type: Spontaneous
  Country: US (occurrence: US)
  Receive Date: 20171009
  Receipt Date: 20171009
  Transmission Date: 20180321
  Serious: Yes (Other)
  Sender: FDA-Public Use
  Company Number: US-ALLERGAN-1756633US

PATIENT
  Sex: Male

DRUGS (2)
  1. LINZESS [Suspect]
     Active Substance: LINACLOTIDE
     Indication: PRODUCT USED FOR UNKNOWN INDICATION
     Dosage: 145 ?G, UNK
     Route: 065
  2. LINZESS [Suspect]
     Active Substance: LINACLOTIDE
     Dosage: 290 ?G, UNK
     Route: 065
     Dates: start: 2017, end: 2017

REACTIONS (5)
  - Wheezing [Not Recovered/Not Resolved]
  - Lip swelling [Unknown]
  - Rash macular [Unknown]
  - Angioedema [Unknown]
  - Lung disorder [Unknown]

NARRATIVE: CASE EVENT DATE: 20170930
